FAERS Safety Report 9849691 (Version 3)
Quarter: 2014Q2

REPORT INFORMATION
  Report Type: Spontaneous
  Country: US (occurrence: US)
  Receive Date: 20131224
  Receipt Date: 20140402
  Transmission Date: 20141212
  Serious: Yes (Other)
  Sender: FDA-Public Use
  Company Number: PHEH2013US023573

PATIENT
  Age: 54 Year
  Sex: Male
  Weight: 88.44 kg

DRUGS (8)
  1. GILENYA [Suspect]
     Indication: MULTIPLE SCLEROSIS
     Dosage: 0.5 MG, QD
     Route: 048
     Dates: start: 2011, end: 20140114
  2. DONEPEZIL [Concomitant]
     Indication: COGNITIVE DISORDER
  3. ROPINIROLE [Concomitant]
     Indication: RESTLESS LEGS SYNDROME
     Dosage: 1 MG, QD
     Route: 048
  4. MODAFINIL [Concomitant]
     Indication: FATIGUE
     Dosage: 200 MG, QD
     Route: 048
  5. LISINOPRIL AND HYDROCHLORTIAZIDE [Concomitant]
     Indication: HYPERTENSION
     Dosage: 1 DF, QD
     Route: 048
  6. OMEPRAZOLE [Concomitant]
     Indication: GASTROOESOPHAGEAL REFLUX DISEASE
     Dosage: 20 MG, QD
     Route: 048
  7. TRAZODONE HCL [Concomitant]
     Dosage: 1 DF, QD
     Route: 048
  8. PROVIGIL//MODAFINIL [Concomitant]
     Dosage: 1 DF, BID

REACTIONS (11)
  - Syncope [Not Recovered/Not Resolved]
  - Supraventricular tachycardia [Unknown]
  - Sinus bradycardia [Not Recovered/Not Resolved]
  - Dizziness [Not Recovered/Not Resolved]
  - Low density lipoprotein increased [Unknown]
  - Blood urea increased [Unknown]
  - Loss of consciousness [Unknown]
  - Blood cholesterol increased [Unknown]
  - Blood glucose increased [Unknown]
  - Fatigue [Unknown]
  - Headache [Unknown]
